FAERS Safety Report 12857612 (Version 2)
Quarter: 2016Q4

REPORT INFORMATION
  Report Type: Spontaneous
  Country: IT (occurrence: IT)
  Receive Date: 20161018
  Receipt Date: 20161018
  Transmission Date: 20170207
  Serious: Yes (Hospitalization, Other)
  Sender: FDA-Public Use
  Company Number: IT-TEVA-702104ACC

PATIENT
  Age: 66 Year
  Sex: Female

DRUGS (4)
  1. CAPECITABINE. [Suspect]
     Active Substance: CAPECITABINE
     Dosage: 2000 MILLIGRAM DAILY; LOWER DOSE: 2000 MG
     Route: 048
     Dates: start: 20160708
  2. CAPECITABINE. [Suspect]
     Active Substance: CAPECITABINE
     Indication: COLON CANCER
     Dosage: 3000 MILLIGRAM DAILY;
     Route: 048
     Dates: start: 20160502, end: 20160516
  3. CARDIOASPIRIN [Concomitant]
     Active Substance: ASPIRIN
     Indication: PROPHYLAXIS
     Dosage: 100 MG
     Route: 048
  4. OXALIPLATIN. [Suspect]
     Active Substance: OXALIPLATIN
     Indication: COLON CANCER
     Dosage: 200 MG (130 MG/M2) TOTAL
     Route: 042
     Dates: start: 20160502, end: 20160502

REACTIONS (5)
  - Abdominal pain [Recovered/Resolved]
  - Neutropenia [Unknown]
  - Diarrhoea [Recovered/Resolved]
  - Vomiting [Recovered/Resolved]
  - Gastrointestinal toxicity [Recovered/Resolved]

NARRATIVE: CASE EVENT DATE: 20160517
